FAERS Safety Report 24397808 (Version 1)
Quarter: 2024Q4

REPORT INFORMATION
  Report Type: Spontaneous
  Country: US (occurrence: US)
  Receive Date: 20241004
  Receipt Date: 20241004
  Transmission Date: 20250114
  Serious: Yes (Other)
  Sender: DR REDDYS
  Company Number: US-DRL-USA-LIT/USA/24/0014501

PATIENT
  Age: 67 Year
  Sex: Female

DRUGS (10)
  1. GEMCITABINE [Suspect]
     Active Substance: GEMCITABINE
     Indication: Hormone receptor positive HER2 negative breast cancer
  2. GEMCITABINE [Suspect]
     Active Substance: GEMCITABINE
     Indication: Metastatic neoplasm
  3. FULVESTRANT [Suspect]
     Active Substance: FULVESTRANT
     Indication: Hormone receptor positive HER2 negative breast cancer
  4. FULVESTRANT [Suspect]
     Active Substance: FULVESTRANT
     Indication: Metastatic neoplasm
  5. PALBOCICLIB [Suspect]
     Active Substance: PALBOCICLIB
     Indication: Hormone receptor positive HER2 negative breast cancer
  6. PALBOCICLIB [Suspect]
     Active Substance: PALBOCICLIB
     Indication: Metastatic neoplasm
  7. ALPELISIB [Concomitant]
     Active Substance: ALPELISIB
     Indication: Hormone receptor positive HER2 negative breast cancer
  8. ALPELISIB [Concomitant]
     Active Substance: ALPELISIB
     Indication: Metastatic neoplasm
  9. ARIMIDEX [Concomitant]
     Active Substance: ANASTROZOLE
     Indication: Hormone receptor positive HER2 negative breast cancer
  10. ARIMIDEX [Concomitant]
     Active Substance: ANASTROZOLE
     Indication: Metastatic neoplasm

REACTIONS (3)
  - Pancytopenia [Unknown]
  - Condition aggravated [Unknown]
  - Drug ineffective [Unknown]
